FAERS Safety Report 6570763-8 (Version None)
Quarter: 2010Q1

REPORT INFORMATION
  Report Type: 
  Country: None (occurrence: None)
  Receive Date: 20100204
  Receipt Date: 20100203
  Transmission Date: 20100710
  Serious: Yes (Hospitalization)
  Sender: FDA-Public Use
  Company Number: US-B.I. PHARMACEUTICALS,INC./RIDGEFIELD-2009-BP-13335BP

PATIENT
  Sex: Male

DRUGS (3)
  1. SPIRIVA [Suspect]
     Indication: CHRONIC OBSTRUCTIVE PULMONARY DISEASE
  2. SPIRIVA [Suspect]
     Indication: BRONCHITIS CHRONIC
  3. FLOMAX [Suspect]
     Indication: URINARY TRACT DISORDER
     Dates: end: 20090814

REACTIONS (3)
  - CARDIAC DISORDER [None]
  - LOSS OF CONSCIOUSNESS [None]
  - SYNCOPE [None]
